FAERS Safety Report 6698107-1 (Version None)
Quarter: 2010Q2

REPORT INFORMATION
  Report Type: 
  Country: None (occurrence: None)
  Receive Date: 20100426
  Receipt Date: 20100426
  Transmission Date: 20101027
  Serious: Yes (Death)
  Sender: FDA-Public Use
  Company Number: None

PATIENT
  Age: 74 Year
  Sex: Male
  Weight: 91 kg

DRUGS (1)
  1. WARFARIN SODIUM [Suspect]
     Dosage: 2.5MG  +  1.25  EVERY OTHER DAY PO
     Route: 048

REACTIONS (7)
  - ARRHYTHMIA [None]
  - BODY TEMPERATURE INCREASED [None]
  - DIZZINESS [None]
  - GENERAL PHYSICAL HEALTH DETERIORATION [None]
  - HAEMORRHAGE INTRACRANIAL [None]
  - INTERNATIONAL NORMALISED RATIO INCREASED [None]
  - UNRESPONSIVE TO STIMULI [None]
